FAERS Safety Report 7131515-3 (Version None)
Quarter: 2010Q4

REPORT INFORMATION
  Report Type: 
  Country: None (occurrence: None)
  Receive Date: 20101201
  Receipt Date: 20101124
  Transmission Date: 20110411
  Serious: Yes (Hospitalization, Other)
  Sender: FDA-Public Use
  Company Number: SE-JNJFOC-20101005025

PATIENT
  Sex: Female

DRUGS (12)
  1. REMICADE [Suspect]
     Indication: RHEUMATOID ARTHRITIS
     Route: 042
  2. BEHEPAN [Concomitant]
  3. CALCIUM WITH VITAMIN D [Concomitant]
  4. TROMBYL [Concomitant]
  5. NORVASC [Concomitant]
  6. LASIX [Concomitant]
  7. METHOTREXATE [Concomitant]
  8. HIPREX [Concomitant]
     Dosage: 3 G
  9. FOLACIN [Concomitant]
  10. PREDNISOLONE [Concomitant]
  11. FOSAMAX [Concomitant]
  12. ETALPHA [Concomitant]
     Dosage: 0.25 MICROGRAM

REACTIONS (3)
  - FATIGUE [None]
  - HERPES ZOSTER [None]
  - PALPITATIONS [None]
